FAERS Safety Report 6731761-4 (Version None)
Quarter: 2010Q2

REPORT INFORMATION
  Report Type: 
  Country: None (occurrence: None)
  Receive Date: 20100519
  Receipt Date: 20100510
  Transmission Date: 20101027
  Serious: Yes (Other)
  Sender: FDA-Public Use
  Company Number: US-PFIZER INC-2010056367

PATIENT
  Age: 75 Year
  Sex: Male
  Weight: 81.6 kg

DRUGS (3)
  1. NORVASC [Suspect]
     Indication: HYPERTENSION
     Dosage: 5 MG, 1X/DAY
     Route: 048
  2. NORVASC [Suspect]
     Dosage: 5 MG, 2X/DAY
     Route: 048
  3. ASPIRIN [Concomitant]
     Dosage: 70 MG, 1X/DAY

REACTIONS (4)
  - ASTHENIA [None]
  - BLOOD URIC ACID INCREASED [None]
  - FIBROMYALGIA [None]
  - VOLUME BLOOD INCREASED [None]
